FAERS Safety Report 9302164 (Version 1)
Quarter: 2013Q2

REPORT INFORMATION
  Report Type: Spontaneous
  Country: US (occurrence: US)
  Receive Date: 20130522
  Receipt Date: 20130522
  Transmission Date: 20140414
  Serious: Yes (Hospitalization)
  Sender: FDA-Public Use
  Company Number: US-B.I. PHARMACEUTICALS,INC./RIDGEFIELD-2013-BI-13630BP

PATIENT
  Age: 85 Year
  Sex: Female
  Weight: 69 kg

DRUGS (2)
  1. PRADAXA [Suspect]
     Indication: ATRIAL FIBRILLATION
     Dosage: 150 MG
     Route: 048
     Dates: end: 201305
  2. CARDIZEM [Concomitant]

REACTIONS (1)
  - Pericardial haemorrhage [Not Recovered/Not Resolved]
